FAERS Safety Report 6543225-1 (Version None)
Quarter: 2010Q1

REPORT INFORMATION
  Report Type: 
  Country: None (occurrence: None)
  Receive Date: 20100120
  Receipt Date: 20100115
  Transmission Date: 20100710
  Serious: Yes (Hospitalization)
  Sender: FDA-Public Use
  Company Number: SE-BRISTOL-MYERS SQUIBB COMPANY-14935894

PATIENT
  Age: 67 Year
  Sex: Male

DRUGS (4)
  1. HYDREA [Suspect]
     Indication: POLYCYTHAEMIA VERA
     Route: 048
     Dates: start: 20090801
  2. APROVEL FILM-COATED TABS 150 MG [Concomitant]
  3. TROMBYL [Concomitant]
     Dosage: TABLETS
  4. HUMALOG [Concomitant]
     Dosage: HUMALOG MIX 25;100DF=100IU/ML

REACTIONS (3)
  - C-REACTIVE PROTEIN INCREASED [None]
  - NAUSEA [None]
  - PYREXIA [None]
